FAERS Safety Report 8861349 (Version 2)
Quarter: 2014Q1

REPORT INFORMATION
  Report Type: Spontaneous
  Country: IT (occurrence: IT)
  Receive Date: 20121026
  Receipt Date: 20140203
  Transmission Date: 20141002
  Serious: Yes (Hospitalization)
  Sender: FDA-Public Use
  Company Number: IT-ACCORD-015025

PATIENT
  Age: 77 Year
  Sex: Female

DRUGS (9)
  1. PREDNISONE [Suspect]
     Route: 048
  2. PYRIDOXINE [Concomitant]
     Route: 048
  3. LANSOPRAZOLE [Concomitant]
     Route: 048
  4. PIRETANIDE/RAMIPRIL [Concomitant]
     Dosage: RAMIPRIL 5 MG, PIRETANIDE 6 MG
     Route: 048
  5. ALPRAZOLAM [Concomitant]
     Route: 048
  6. VENLAFAXINE/VENLAFAXINE HYDROCHLORIDE [Concomitant]
     Route: 048
  7. GEMCITABINE/GEMCITABINE HYDROCHLORIDE [Suspect]
     Indication: OVARIAN CANCER STAGE I
     Dosage: CYCLIC
     Route: 042
     Dates: start: 20120831, end: 20120907
  8. ALLOPURINOL [Concomitant]
     Route: 048
  9. OXYCODONE [Concomitant]
     Dosage: STRENGTH 5 MG
     Route: 048

REACTIONS (1)
  - Angina pectoris [Recovered/Resolved]
